FAERS Safety Report 26190201 (Version 1)
Quarter: 2025Q4

REPORT INFORMATION
  Report Type: Spontaneous
  Country: EU (occurrence: EU)
  Receive Date: 20251223
  Receipt Date: 20251223
  Transmission Date: 20260117
  Serious: Yes (Death, Other)
  Sender: AMGEN
  Company Number: EU-AMGEN-ESPSP2025251013

PATIENT

DRUGS (1)
  1. BLINATUMOMAB [Suspect]
     Active Substance: BLINATUMOMAB
     Indication: Acute lymphocytic leukaemia
     Dosage: UNK
     Route: 065

REACTIONS (11)
  - Complications of bone marrow transplant [Fatal]
  - Acute lymphocytic leukaemia recurrent [Fatal]
  - Infection [Fatal]
  - Minimal residual disease [Unknown]
  - Acute graft versus host disease [Unknown]
  - Systemic mycosis [Unknown]
  - Chronic graft versus host disease [Unknown]
  - Epstein-Barr virus infection reactivation [Unknown]
  - Cytomegalovirus infection reactivation [Unknown]
  - Bacteraemia [Unknown]
  - Viral infection [Unknown]
